FAERS Safety Report 8229179-0 (Version None)
Quarter: 2012Q1

REPORT INFORMATION
  Report Type: 
  Country: None (occurrence: None)
  Receive Date: 20120322
  Receipt Date: 20120315
  Transmission Date: 20120608
  Serious: Yes (Other)
  Sender: FDA-Public Use
  Company Number: BR-PFIZER INC-2012069287

PATIENT
  Age: 74 Year
  Sex: Female
  Weight: 58 kg

DRUGS (4)
  1. METOPROLOL TARTRATE [Concomitant]
     Indication: HYPERTENSION
     Dosage: UNK
  2. PANTOPRAZOLE [Concomitant]
     Indication: GASTRITIS
     Dosage: ONLY WHEN SHE FELT PAIN
  3. DIOVAN [Concomitant]
     Indication: HYPERTENSION
     Dosage: UNK
  4. XALATAN [Suspect]
     Indication: INTRAOCULAR PRESSURE INCREASED
     Dosage: 3 UG, 1X/DAY (1 GTT EACH EYE, 1X/DAY)
     Route: 047

REACTIONS (3)
  - MYOPIA [None]
  - INTRAOCULAR PRESSURE INCREASED [None]
  - CATARACT [None]
